FAERS Safety Report 6876460-3 (Version None)
Quarter: 2010Q3

REPORT INFORMATION
  Report Type: 
  Country: None (occurrence: None)
  Receive Date: 20100727
  Receipt Date: 20100715
  Transmission Date: 20110219
  Serious: Yes (Other)
  Sender: FDA-Public Use
  Company Number: JP-PFIZER INC-2010089060

PATIENT
  Age: 56 Year
  Sex: Female

DRUGS (8)
  1. CAMPTOSAR [Suspect]
     Indication: RECTAL CANCER
     Dosage: 200 MG
     Route: 041
     Dates: start: 20100113
  2. AVASTIN [Suspect]
     Indication: RECTAL CANCER
     Dosage: 217 MG
     Route: 041
     Dates: start: 20100203, end: 20100519
  3. FLUOROURACIL [Concomitant]
     Indication: RECTAL CANCER
     Dosage: 540 MG
     Route: 040
     Dates: start: 20100113, end: 20100407
  4. FLUOROURACIL [Concomitant]
     Dosage: 3260 MG
     Route: 041
     Dates: start: 20100113, end: 20100407
  5. FLUOROURACIL [Concomitant]
     Dosage: 3260 MG, UNK
     Route: 041
     Dates: start: 20100428, end: 20100519
  6. FLUOROURACIL [Concomitant]
     Dosage: UNK
     Route: 041
  7. CALCIUM LEVOFOLINATE [Concomitant]
     Indication: RECTAL CANCER
     Dosage: UNK
     Route: 041
     Dates: start: 20100113
  8. INDISETRON DIHYDROCHLORIDE [Concomitant]
     Route: 048

REACTIONS (1)
  - REVERSIBLE POSTERIOR LEUKOENCEPHALOPATHY SYNDROME [None]
